FAERS Safety Report 9365135 (Version 3)
Quarter: 2013Q3

REPORT INFORMATION
  Report Type: Spontaneous
  Country: BR (occurrence: BR)
  Receive Date: 20130624
  Receipt Date: 20130828
  Transmission Date: 20140515
  Serious: Yes (Other)
  Sender: FDA-Public Use
  Company Number: PHHY2013BR063332

PATIENT
  Age: 40 Year
  Sex: Female
  Weight: 103 kg

DRUGS (9)
  1. HIGROTON [Suspect]
     Indication: HYPERTENSION
     Dosage: 1 TABLET (50 MG), DAILY
     Route: 048
  2. HIGROTON [Suspect]
     Dosage: 1 TABLET (25 MG), DAILY
     Route: 048
     Dates: start: 2010
  3. ADALAT [Suspect]
     Dosage: 20 MG, UNK
  4. ATENOLOL [Concomitant]
     Indication: HYPERTENSION
     Dosage: 2 TABLETS (50 MG), DAILY
     Route: 048
     Dates: start: 2010
  5. APRESOLINE [Concomitant]
     Indication: HYPERTENSION
     Dosage: 3 DF, DAILY
     Route: 048
     Dates: start: 2008
  6. LOSARTAN [Concomitant]
     Indication: HYPERTENSION
     Dosage: 2 TABLETS (50 MG), DAILY
     Route: 048
     Dates: start: 2010
  7. ALDACTONE [Concomitant]
     Indication: HYPERTENSION
     Dosage: 1 TABLET (100 MG), DAILY
     Route: 048
     Dates: start: 2010
  8. PRESSAT [Concomitant]
     Indication: HYPERTENSION
     Dosage: 1 TABLET (5 MG), DAILY
     Route: 048
     Dates: start: 2010
  9. METILDOPA [Concomitant]
     Indication: HYPERTENSION
     Dosage: 6 TABLETS (500 MG), DAILY
     Route: 048
     Dates: start: 200801, end: 2010

REACTIONS (6)
  - Depression [Recovered/Resolved]
  - Fear of death [Recovering/Resolving]
  - Cardiomyopathy [Unknown]
  - Blood pressure increased [Unknown]
  - Blood pressure inadequately controlled [Recovered/Resolved]
  - Exposure during pregnancy [Recovered/Resolved]
